FAERS Safety Report 10712829 (Version 2)
Quarter: 2015Q1

REPORT INFORMATION
  Report Type: Report from Study
  Country: CA (occurrence: CA)
  Receive Date: 20150115
  Receipt Date: 20150116
  Transmission Date: 20150721
  Serious: Yes (Other)
  Sender: FDA-Public Use
  Company Number: CA-ROCHE-1520951

PATIENT
  Age: 61 Year
  Sex: Female

DRUGS (6)
  1. RITUXAN [Suspect]
     Active Substance: RITUXIMAB
     Indication: LYMPHOMA
     Route: 042
     Dates: start: 2012
  2. PERCOCET [Concomitant]
     Active Substance: ACETAMINOPHEN\OXYCODONE HYDROCHLORIDE
     Dosage: AS REQUIRED
     Route: 065
  3. OMEPRAZOLE. [Concomitant]
     Active Substance: OMEPRAZOLE
     Route: 048
  4. LYRICA [Concomitant]
     Active Substance: PREGABALIN
  5. RISEDRONATE [Concomitant]
     Active Substance: RISEDRONATE SODIUM
     Route: 065
  6. RITUXAN [Suspect]
     Active Substance: RITUXIMAB
     Indication: RHEUMATOID ARTHRITIS
     Route: 042
     Dates: start: 20150114

REACTIONS (3)
  - Spinal fracture [Unknown]
  - Vomiting [Unknown]
  - Infusion related reaction [Unknown]

NARRATIVE: CASE EVENT DATE: 20150114
